FAERS Safety Report 6064145-5 (Version None)
Quarter: 2009Q1

REPORT INFORMATION
  Report Type: 
  Country: None (occurrence: None)
  Receive Date: 20090204
  Receipt Date: 20090129
  Transmission Date: 20090719
  Serious: Yes (Hospitalization, Other)
  Sender: FDA-Public Use
  Company Number: US-BAYER-200840580NA

PATIENT
  Age: 48 Year
  Sex: Female
  Weight: 59 kg

DRUGS (4)
  1. MIRENA [Suspect]
     Indication: CONTRACEPTION
     Route: 015
     Dates: start: 20080623, end: 20081003
  2. CELEXA [Concomitant]
  3. NEXIUM [Concomitant]
  4. FLEXERIL [Concomitant]

REACTIONS (8)
  - ABDOMINAL ADHESIONS [None]
  - CHILLS [None]
  - PAIN [None]
  - PELVIC INFLAMMATORY DISEASE [None]
  - PELVIC PAIN [None]
  - PYREXIA [None]
  - SALPINGITIS [None]
  - VAGINAL HAEMORRHAGE [None]
